FAERS Safety Report 6844254-0 (Version None)
Quarter: 2010Q3

REPORT INFORMATION
  Report Type: 
  Country: None (occurrence: None)
  Receive Date: 20100712
  Receipt Date: 20100624
  Transmission Date: 20110219
  Serious: Yes (Life-Threatening)
  Sender: FDA-Public Use
  Company Number: 616454

PATIENT
  Age: 57 Year
  Sex: Male
  Weight: 80 kg

DRUGS (8)
  1. FENTANYL CITRATE [Suspect]
     Indication: ANALGESIC THERAPY
     Dosage: 100 MG MILLIGRAM(S), INTRAVENOUS
     Route: 042
     Dates: start: 20100517, end: 20100517
  2. MIDAZOLAM HCL [Suspect]
     Dates: start: 20100517, end: 20100517
  3. ONDANSETRON [Suspect]
     Indication: ANALGESIC THERAPY
     Dosage: 8 MG MILLIGRAMS(S), INTRAVENOUS
     Route: 042
     Dates: start: 20100517, end: 20100517
  4. DICLOFENAC SODIUM [Suspect]
     Dosage: 75 MG MILLIGRAM(S), INTRAVENOUS
     Route: 042
     Dates: start: 20100517, end: 20100517
  5. PROPOFOL [Suspect]
     Indication: ANALGESIC THERAPY
     Dosage: 180 MG MILLIGRAM(S), INTRAVENOUS
     Route: 042
     Dates: start: 20100517, end: 20100517
  6. SEVOFLURANE [Concomitant]
  7. AMLODIPINE [Concomitant]
  8. VALSARTAN [Concomitant]

REACTIONS (1)
  - ANAPHYLACTIC REACTION [None]
